FAERS Safety Report 6528441 (Version 2)
Quarter: 2012Q4

REPORT INFORMATION
  Report Type: Report from Study
  Country: GB (occurrence: GB)
  Receive Date: 20080116
  Receipt Date: 20121231
  Transmission Date: 20130627
  Serious: Yes (Death, Hospitalization)
  Sender: FDA-Public Use
  Company Number: GB-ROCHE-540873

PATIENT
  Age: 61 Year
  Sex: Female

DRUGS (9)
  1. CAPECITABINE [Suspect]
     Indication: COLORECTAL CANCER
     Route: 048
     Dates: start: 20071128, end: 20071212
  2. OXALIPLATIN [Suspect]
     Indication: COLORECTAL CANCER
     Route: 042
     Dates: start: 20071128, end: 20071212
  3. CETUXIMAB [Suspect]
     Indication: COLORECTAL CANCER
     Route: 042
     Dates: start: 20071128, end: 20071212
  4. FELODIPINE [Concomitant]
     Route: 048
  5. METOCLOPRAMID [Concomitant]
     Route: 065
  6. PROPIOMAZINE [Concomitant]
     Route: 065
  7. DALTEPARIN SODIUM [Concomitant]
     Route: 058
  8. KODEIN [Concomitant]
     Route: 065
  9. PARACETAMOL [Concomitant]
     Route: 065

REACTIONS (3)
  - Dehydration [Fatal]
  - Diarrhoea [Fatal]
  - Vomiting [Fatal]
